FAERS Safety Report 9289558 (Version 5)
Quarter: 2013Q4

REPORT INFORMATION
  Report Type: Report from Study
  Country: CA (occurrence: CA)
  Receive Date: 20130515
  Receipt Date: 20131002
  Transmission Date: 20140711
  Serious: Yes (Hospitalization, Other)
  Sender: FDA-Public Use
  Company Number: CA-ROCHE-1085786

PATIENT
  Age: 80 Year
  Sex: Male

DRUGS (4)
  1. ZELBORAF [Suspect]
     Indication: METASTATIC MALIGNANT MELANOMA
     Dosage: PILLS
     Route: 048
     Dates: start: 201206, end: 20120718
  2. ZELBORAF [Suspect]
     Route: 048
     Dates: start: 20120810
  3. VITAMIN E [Concomitant]
     Route: 065
  4. APPLE CIDER VINEGAR [Concomitant]
     Indication: ARTHRITIS
     Route: 065

REACTIONS (9)
  - Rash generalised [Recovering/Resolving]
  - Blister [Recovering/Resolving]
  - Erythema [Not Recovered/Not Resolved]
  - Paraesthesia [Not Recovered/Not Resolved]
  - Cystitis [Unknown]
  - Fatigue [Not Recovered/Not Resolved]
  - Disease progression [Not Recovered/Not Resolved]
  - Dehydration [Unknown]
  - Cough [Not Recovered/Not Resolved]
